FAERS Safety Report 9759169 (Version 2)
Quarter: 2013Q4

REPORT INFORMATION
  Report Type: Spontaneous
  Country: JP (occurrence: JP)
  Receive Date: 20131216
  Receipt Date: 20131216
  Transmission Date: 20140711
  Serious: Yes (Other)
  Sender: FDA-Public Use
  Company Number: JP-NAPPMUNDI-DEU-2013-0012864

PATIENT
  Age: 80 Year
  Sex: Female

DRUGS (4)
  1. BUPRENORPHINE TRANSDERMAL SYSTEM [Suspect]
     Indication: PRODUCT USED FOR UNKNOWN INDICATION
     Dosage: 20 MCG, Q1H
     Route: 062
     Dates: start: 20131024, end: 20131101
  2. BUPRENORPHINE TRANSDERMAL SYSTEM [Suspect]
     Dosage: 15 MCG, Q1H
     Route: 062
     Dates: start: 20131002, end: 20131024
  3. BUPRENORPHINE TRANSDERMAL SYSTEM [Suspect]
     Dosage: 10 MCG, Q1H
     Route: 062
     Dates: start: 201309, end: 20131002
  4. BUPRENORPHINE TRANSDERMAL SYSTEM [Suspect]
     Dosage: 5 MCG, Q1H
     Route: 062
     Dates: start: 20130820, end: 201309

REACTIONS (2)
  - Dementia [Recovering/Resolving]
  - Nausea [Recovered/Resolved]
